FAERS Safety Report 20113638 (Version 1)
Quarter: 2021Q4

REPORT INFORMATION
  Report Type: Spontaneous
  Country: US (occurrence: US)
  Receive Date: 20211125
  Receipt Date: 20211125
  Transmission Date: 20220303
  Serious: Yes (Death, Other)
  Sender: FDA-Public Use
  Company Number: US-TEVA-2021-US-1980788

PATIENT
  Age: 24 Year
  Sex: Male

DRUGS (5)
  1. CLOZAPINE [Suspect]
     Active Substance: CLOZAPINE
     Indication: Suicidal behaviour
     Dosage: 300 MILLIGRAM DAILY; AT BEDTIME
     Route: 065
  2. CITALOPRAM [Concomitant]
     Active Substance: CITALOPRAM HYDROBROMIDE
     Indication: Delusion
     Dosage: 40 MILLIGRAM DAILY;
     Route: 065
  3. CITALOPRAM [Concomitant]
     Active Substance: CITALOPRAM HYDROBROMIDE
     Indication: Emotional poverty
  4. MODAFINIL [Concomitant]
     Active Substance: MODAFINIL
     Indication: Delusion
     Dosage: 200 MILLIGRAM DAILY;
     Route: 065
  5. MODAFINIL [Concomitant]
     Active Substance: MODAFINIL
     Indication: Emotional poverty

REACTIONS (3)
  - Completed suicide [Fatal]
  - Rebound effect [Fatal]
  - Sedation [Unknown]
